FAERS Safety Report 6832439-9 (Version None)
Quarter: 2010Q3

REPORT INFORMATION
  Report Type: 
  Country: None (occurrence: None)
  Receive Date: 20100712
  Receipt Date: 20070312
  Transmission Date: 20110219
  Serious: No
  Sender: FDA-Public Use
  Company Number: US-PFIZER INC-2007020109

PATIENT
  Sex: Female
  Weight: 48.99 kg

DRUGS (7)
  1. CHANTIX [Suspect]
     Indication: SMOKING CESSATION THERAPY
     Dates: start: 20070303
  2. HUMIRA [Concomitant]
     Indication: RHEUMATOID ARTHRITIS
  3. CYANOCOBALAMIN [Concomitant]
     Indication: ESCHERICHIA INFECTION
  4. SPIRIVA [Concomitant]
  5. VALSARTAN [Concomitant]
     Indication: HYPERTENSION
  6. LEVOXYL [Concomitant]
     Indication: THYROID DISORDER
  7. FEMHRT [Concomitant]

REACTIONS (3)
  - DYSPEPSIA [None]
  - FLATULENCE [None]
  - NAUSEA [None]
